FAERS Safety Report 5400646-8 (Version None)
Quarter: 2007Q3

REPORT INFORMATION
  Report Type: 
  Country: None (occurrence: None)
  Receive Date: 20070730
  Receipt Date: 20070712
  Transmission Date: 20080115
  Serious: Yes (Hospitalization, Disabling, Other)
  Sender: FDA-Public Use
  Company Number: US-PFIZER INC-2006016228

PATIENT
  Sex: Female
  Weight: 90.7 kg

DRUGS (5)
  1. BEXTRA [Suspect]
     Indication: ARTHRITIS
  2. VIOXX [Suspect]
     Indication: ARTHRITIS
     Route: 048
  3. VIOXX [Suspect]
     Indication: PAIN
  4. ALEVE [Concomitant]
  5. GLUCOSAMINE [Concomitant]
     Dates: start: 20020101

REACTIONS (3)
  - CARDIOVASCULAR DISORDER [None]
  - HEART INJURY [None]
  - MYOCARDIAL INFARCTION [None]
